FAERS Safety Report 17265807 (Version 24)
Quarter: 2023Q4

REPORT INFORMATION
  Report Type: Report from Study
  Country: US (occurrence: US)
  Receive Date: 20200114
  Receipt Date: 20231018
  Transmission Date: 20240110
  Serious: Yes (Hospitalization, Other)
  Sender: FDA-Public Use
  Company Number: US-AEGERION PHARMACEUTICAL, INC-AEGR004648

PATIENT
  Age: 71 Year
  Sex: Female
  Weight: 69.388 kg

DRUGS (128)
  1. METRELEPTIN [Suspect]
     Active Substance: METRELEPTIN
     Indication: Congenital generalised lipodystrophy
     Dosage: 5 MILLIGRAM, QD
     Route: 058
     Dates: start: 20170327, end: 20190331
  2. METRELEPTIN [Suspect]
     Active Substance: METRELEPTIN
     Dosage: 6.25 MILLIGRAM, QD
     Route: 058
     Dates: start: 20190401, end: 20200221
  3. MULTIVITAMINS                      /07504101/ [Concomitant]
     Indication: Product used for unknown indication
  4. VASCEPA [Concomitant]
     Active Substance: ICOSAPENT ETHYL
     Indication: Hyperlipidaemia
     Dosage: 4 G, QD
     Route: 048
     Dates: start: 20160125, end: 20180812
  5. VASCEPA [Concomitant]
     Active Substance: ICOSAPENT ETHYL
     Dosage: 2 G, QD
     Route: 048
     Dates: start: 20180813, end: 20201101
  6. VALTREX [Concomitant]
     Active Substance: VALACYCLOVIR HYDROCHLORIDE
     Indication: Herpes simplex
     Dosage: 500 MG, PRN
     Route: 048
     Dates: start: 20180525
  7. PRIMIDONE [Concomitant]
     Active Substance: PRIMIDONE
     Indication: Product used for unknown indication
  8. ASPIRIN [Concomitant]
     Active Substance: ASPIRIN
     Indication: Cardiovascular event prophylaxis
     Dosage: 81 MG, QD
     Route: 048
  9. CRESTOR [Concomitant]
     Active Substance: ROSUVASTATIN CALCIUM
     Indication: Type IIa hyperlipidaemia
     Dosage: 40 MG, QD
     Route: 048
     Dates: start: 20180813
  10. PAXIL                              /00500401/ [Concomitant]
     Indication: Anxiety
     Dosage: 30 MG, QD
     Route: 048
     Dates: start: 20190625, end: 20200329
  11. PAXIL                              /00500401/ [Concomitant]
     Dosage: 30 MILLIGRAM, BID
     Route: 048
     Dates: start: 20200330, end: 20220224
  12. SYNTHROID [Concomitant]
     Active Substance: LEVOTHYROXINE SODIUM
     Indication: Hypothyroidism
     Dosage: 100 UG, QD
     Route: 048
     Dates: start: 20180427, end: 20210531
  13. LEVEMIR [Concomitant]
     Active Substance: INSULIN DETEMIR
     Indication: Type 2 diabetes mellitus
     Dosage: 25 UNITS, QD
     Route: 058
     Dates: start: 20170109, end: 20190820
  14. ALLEGRA ALLERGY [Concomitant]
     Active Substance: FEXOFENADINE HYDROCHLORIDE
     Indication: Seasonal allergy
     Dosage: 180 MG, PRN
     Route: 048
     Dates: start: 20180316
  15. NOVOLOG [Concomitant]
     Active Substance: INSULIN ASPART
     Indication: Type 2 diabetes mellitus
     Dosage: 10 UNITS, TID
     Route: 058
     Dates: start: 20160617, end: 20170813
  16. NOVOLOG [Concomitant]
     Active Substance: INSULIN ASPART
     Dosage: 15 UNITS, TID
     Route: 058
     Dates: start: 20170814, end: 20220224
  17. SENNA LAXATIVE [Concomitant]
     Active Substance: SENNOSIDES
     Indication: Product used for unknown indication
  18. PANTOPRAZOLE SODIUM [Concomitant]
     Active Substance: PANTOPRAZOLE SODIUM
     Indication: Chronic gastritis
     Dosage: 40 MILLIGRAM, QD
     Route: 048
     Dates: start: 20200624, end: 20200907
  19. METOPROLOL SUCCINATE [Concomitant]
     Active Substance: METOPROLOL SUCCINATE
     Indication: Hypertension
     Dosage: 50 MG, BID
     Route: 048
     Dates: start: 20151110
  20. MELATONIN [Concomitant]
     Active Substance: MELATONIN
     Indication: Supplementation therapy
     Dosage: 1 DF, PRN
     Route: 048
     Dates: start: 20161011
  21. MECLIZINE HYDROCHLORIDE [Concomitant]
     Active Substance: MECLIZINE HYDROCHLORIDE
     Indication: Vertigo
     Dosage: 25 MG, PRN
     Route: 048
     Dates: start: 20160626
  22. MAGNESIUM OXIDE [Concomitant]
     Active Substance: MAGNESIUM OXIDE
     Indication: Supplementation therapy
     Dosage: 250 MG, QD
  23. LISINOPRIL [Concomitant]
     Active Substance: LISINOPRIL
     Indication: Hypertension
     Dosage: 40 MG, QD
     Route: 048
     Dates: start: 20160125, end: 20190616
  24. LISINOPRIL [Concomitant]
     Active Substance: LISINOPRIL
     Dosage: 20 MG, QD
     Route: 048
     Dates: start: 20190617
  25. XOPENEX HFA [Concomitant]
     Active Substance: LEVALBUTEROL TARTRATE
     Indication: Product used for unknown indication
  26. JANUVIA [Concomitant]
     Active Substance: SITAGLIPTIN PHOSPHATE
     Indication: Type 2 diabetes mellitus
     Dosage: 100 MG, QD
     Route: 048
     Dates: start: 20160615, end: 20210601
  27. NORCO [Concomitant]
     Active Substance: ACETAMINOPHEN\HYDROCODONE BITARTRATE
     Indication: Fibromyalgia
     Dosage: 1 TABLET, PRN
     Route: 048
     Dates: start: 20160218, end: 20180531
  28. NORCO [Concomitant]
     Active Substance: ACETAMINOPHEN\HYDROCODONE BITARTRATE
     Indication: Arthralgia
     Dosage: 1 TABLET, PRN
     Route: 048
     Dates: start: 20180621, end: 20180805
  29. NORCO [Concomitant]
     Active Substance: ACETAMINOPHEN\HYDROCODONE BITARTRATE
     Dosage: 1 TABLET, PRN
     Route: 048
     Dates: start: 20180813, end: 20200217
  30. NORCO [Concomitant]
     Active Substance: ACETAMINOPHEN\HYDROCODONE BITARTRATE
     Dosage: 1 TABLET, PRN
     Dates: start: 20210430, end: 20211226
  31. VITAMIN D2 [Concomitant]
     Active Substance: ERGOCALCIFEROL
     Indication: Supplementation therapy
     Dosage: 1 TABLET, QW
     Route: 048
     Dates: start: 20160627, end: 20220224
  32. CALCIUM [Concomitant]
     Active Substance: CALCIUM
     Indication: Supplementation therapy
     Dosage: 600 MG, QD
     Route: 048
     Dates: start: 20110624, end: 20190623
  33. CALCIUM [Concomitant]
     Active Substance: CALCIUM
     Dosage: 600 MG, BID
     Route: 048
     Dates: start: 20190624
  34. NORVASC [Concomitant]
     Active Substance: AMLODIPINE BESYLATE
     Indication: Hypertension
     Dosage: 5 MG, QD
     Route: 048
     Dates: start: 20161212, end: 20190623
  35. NORVASC [Concomitant]
     Active Substance: AMLODIPINE BESYLATE
     Dosage: 5 MG, BID
     Route: 048
     Dates: start: 20190624, end: 20190804
  36. NORVASC [Concomitant]
     Active Substance: AMLODIPINE BESYLATE
     Dosage: 7.5 MG, QD
     Route: 048
     Dates: start: 20190805
  37. VITAMIN B12 [Concomitant]
     Active Substance: CYANOCOBALAMIN
     Indication: Product used for unknown indication
  38. COENZYME Q10 [Concomitant]
     Active Substance: DIETARY SUPPLEMENT\UBIDECARENONE
     Indication: Supplementation therapy
     Dosage: 100 MG, QD
     Route: 048
     Dates: start: 20180213
  39. AMITRIPTYLINE [Concomitant]
     Active Substance: AMITRIPTYLINE
     Indication: Anxiety
     Dosage: 25 MG, PRN
     Route: 048
     Dates: start: 20170109, end: 20190624
  40. CETIRIZINE [Concomitant]
     Active Substance: CETIRIZINE HYDROCHLORIDE
     Indication: Seasonal allergy
     Dosage: 10 MG, QD
     Route: 048
     Dates: start: 20160708, end: 20180315
  41. LEVALBUTEROL                       /01419301/ [Concomitant]
     Indication: Asthma
     Dosage: 2 PUFF, PRN
     Route: 055
     Dates: start: 20161115, end: 20190926
  42. LEVALBUTEROL                       /01419301/ [Concomitant]
     Dosage: 1.25 MG, TID
     Route: 055
     Dates: start: 20161115
  43. PAROXETINE [Concomitant]
     Active Substance: PAROXETINE
     Indication: Anxiety
     Dosage: 20 MG, QD
     Route: 048
     Dates: start: 20170210, end: 20190514
  44. DOCUSATE SODIUM\SENNOSIDES A AND B [Concomitant]
     Active Substance: DOCUSATE SODIUM\SENNOSIDES A AND B
     Indication: Constipation
     Dosage: 1 TABLET, PRN
     Route: 048
     Dates: start: 20160218, end: 20210218
  45. MYSOLINE [Concomitant]
     Active Substance: PRIMIDONE
     Indication: Essential tremor
     Dosage: 50 MG, QD
     Route: 048
     Dates: start: 20180503, end: 20180620
  46. MYSOLINE [Concomitant]
     Active Substance: PRIMIDONE
     Dosage: 250 MG, QD
     Route: 048
     Dates: start: 20180621, end: 20200927
  47. MYSOLINE [Concomitant]
     Active Substance: PRIMIDONE
     Dosage: 12.5 MILLIGRAM, QD
     Route: 048
     Dates: start: 20200928, end: 20210601
  48. MYSOLINE [Concomitant]
     Active Substance: PRIMIDONE
     Dosage: 250 MILLIGRAM, QD
     Route: 048
     Dates: start: 20210901, end: 20211201
  49. MYSOLINE [Concomitant]
     Active Substance: PRIMIDONE
     Dosage: 250 MILLIGRAM, BID
     Dates: start: 20211202, end: 20220224
  50. LANSOPRAZOLE [Concomitant]
     Active Substance: LANSOPRAZOLE
     Indication: Gastrooesophageal reflux disease
     Dosage: 30 MG, QD
     Route: 048
     Dates: start: 20170925, end: 20190515
  51. TRAMADOL [Concomitant]
     Active Substance: TRAMADOL\TRAMADOL HYDROCHLORIDE
     Indication: Arthralgia
     Dosage: 50 MG, PRN
     Route: 048
     Dates: start: 20180806, end: 20180812
  52. TRAMADOL [Concomitant]
     Active Substance: TRAMADOL\TRAMADOL HYDROCHLORIDE
     Dosage: 30 MILLIGRAM
     Route: 030
     Dates: start: 20211205, end: 20211205
  53. PROTONIX [Concomitant]
     Active Substance: PANTOPRAZOLE SODIUM
     Indication: Gastrooesophageal reflux disease
     Dosage: 40 MG, QD
     Route: 048
     Dates: start: 20151110, end: 20170924
  54. BACLOFEN [Concomitant]
     Active Substance: BACLOFEN
     Indication: Fibromyalgia
     Dosage: 20 MG, TID
     Route: 048
     Dates: start: 20170830, end: 20171026
  55. GABAPENTIN [Concomitant]
     Active Substance: GABAPENTIN
     Indication: Fibromyalgia
     Dosage: 200 MG, BID
     Route: 048
     Dates: start: 20170608, end: 20170830
  56. GABAPENTIN [Concomitant]
     Active Substance: GABAPENTIN
     Dosage: 100 MG, BID
     Route: 048
     Dates: start: 20180126, end: 20180315
  57. GABAPENTIN [Concomitant]
     Active Substance: GABAPENTIN
     Dosage: 300 MG, TID
     Route: 048
     Dates: start: 20180621, end: 20181205
  58. GABAPENTIN [Concomitant]
     Active Substance: GABAPENTIN
     Dosage: 600 MILLIGRAM, BID
     Route: 048
     Dates: start: 20210106, end: 20211019
  59. GABAPENTIN [Concomitant]
     Active Substance: GABAPENTIN
     Dosage: 800 MILLIGRAM, BID
     Dates: start: 20211020, end: 20220223
  60. GABAPENTIN [Concomitant]
     Active Substance: GABAPENTIN
     Dosage: 300 MILLIGRAM, BID
     Dates: start: 20220224, end: 20230706
  61. EZETIMIBE [Concomitant]
     Active Substance: EZETIMIBE
     Indication: Hyperlipidaemia
     Dosage: 5 MG, QD
     Route: 048
     Dates: start: 20180213, end: 20180813
  62. AMOXICILLIN [Concomitant]
     Active Substance: AMOXICILLIN
     Indication: Sinusitis
     Dosage: 875 MG, BID
     Route: 048
     Dates: start: 20180226, end: 20180304
  63. AMOXICILLIN [Concomitant]
     Active Substance: AMOXICILLIN
     Dosage: 500 MILLIGRAM, TID
     Route: 048
     Dates: start: 20200820, end: 20200913
  64. PREDNISONE [Concomitant]
     Active Substance: PREDNISONE
     Indication: Sinusitis
     Dosage: 20 MG, BID
     Route: 048
     Dates: start: 20180302, end: 20180307
  65. PROPRANOLOL [Concomitant]
     Active Substance: PROPRANOLOL HYDROCHLORIDE
     Indication: Essential tremor
     Dosage: 20 MG, BID
     Route: 048
     Dates: start: 20180413, end: 20180503
  66. DULCOLAX (BISACODYL) [Concomitant]
     Active Substance: BISACODYL
     Indication: Constipation
     Dosage: 5 MG, QD
     Route: 048
     Dates: start: 20180503, end: 20200907
  67. ACETAMINOPHEN\OXYCODONE HYDROCHLORIDE\OXYCODONE TEREPHTHALATE [Concomitant]
     Active Substance: ACETAMINOPHEN\OXYCODONE HYDROCHLORIDE\OXYCODONE TEREPHTHALATE
     Indication: Arthralgia
     Dosage: 1 TABLET, PRN
     Route: 048
     Dates: start: 20180531, end: 20180620
  68. ACETAMINOPHEN\OXYCODONE HYDROCHLORIDE\OXYCODONE TEREPHTHALATE [Concomitant]
     Active Substance: ACETAMINOPHEN\OXYCODONE HYDROCHLORIDE\OXYCODONE TEREPHTHALATE
     Dosage: 1 TABLET, PRN
     Route: 048
     Dates: start: 20200218, end: 20210429
  69. ACETAMINOPHEN\OXYCODONE HYDROCHLORIDE\OXYCODONE TEREPHTHALATE [Concomitant]
     Active Substance: ACETAMINOPHEN\OXYCODONE HYDROCHLORIDE\OXYCODONE TEREPHTHALATE
     Dosage: 1 TABLET, PRN
     Route: 048
     Dates: start: 20211227
  70. LYRICA [Concomitant]
     Active Substance: PREGABALIN
     Indication: Arthralgia
     Dosage: 150 MG, BID
     Route: 048
     Dates: start: 20180910, end: 20181218
  71. LYRICA [Concomitant]
     Active Substance: PREGABALIN
     Indication: Fibromyalgia
     Dosage: 50 MG, TID
     Route: 048
     Dates: start: 20181219, end: 20201102
  72. BUPIVACAINE [Concomitant]
     Active Substance: BUPIVACAINE
     Indication: Arthralgia
     Dosage: 4 ML, ONE TIME
     Route: 014
     Dates: start: 20180905, end: 20180905
  73. METHYLPREDNISOLONE ACETATE [Concomitant]
     Active Substance: METHYLPREDNISOLONE ACETATE
     Indication: Arthralgia
     Dosage: 40 MG, ONE TIME
     Route: 014
     Dates: start: 20180905, end: 20180905
  74. BUSPIRONE [Concomitant]
     Active Substance: BUSPIRONE HYDROCHLORIDE
     Indication: Anxiety
     Dosage: 10 MG, TID
     Route: 048
     Dates: start: 20181019, end: 20190514
  75. BUSPIRONE [Concomitant]
     Active Substance: BUSPIRONE HYDROCHLORIDE
     Dosage: 7.5 MILLIGRAM, BID
     Route: 048
     Dates: start: 20190515, end: 20220325
  76. KENALOG [Concomitant]
     Active Substance: TRIAMCINOLONE ACETONIDE
     Indication: Arthralgia
     Dosage: 40 MG, ONE TIME
     Route: 014
     Dates: start: 20181029, end: 20181029
  77. KENALOG [Concomitant]
     Active Substance: TRIAMCINOLONE ACETONIDE
     Dosage: (80 MG/ML) 2 ML, ONE TIME
     Route: 014
     Dates: start: 20200305, end: 20200305
  78. FLUTICASONE [Concomitant]
     Active Substance: FLUTICASONE
     Indication: Seasonal allergy
     Dosage: 2 PUFF, QD
     Route: 045
     Dates: start: 20180719, end: 20181024
  79. FLUTICASONE [Concomitant]
     Active Substance: FLUTICASONE
     Indication: Paranasal sinus discomfort
     Dosage: 2 PUFF, PRN
     Route: 045
     Dates: start: 20190108
  80. CYMBALTA [Concomitant]
     Active Substance: DULOXETINE HYDROCHLORIDE
     Indication: Anxiety
     Dosage: 30 MG, QD
     Route: 048
     Dates: start: 20190515, end: 20190624
  81. MELOXICAM [Concomitant]
     Active Substance: MELOXICAM
     Indication: Fibromyalgia
     Dosage: 7.5 MG, QD
     Route: 048
     Dates: start: 20190613, end: 20191031
  82. LIDOCAINE [Concomitant]
     Active Substance: LIDOCAINE
     Indication: Arthralgia
     Dosage: 5 ML, ONE TIME
     Route: 058
     Dates: start: 20190820, end: 20190820
  83. LIDOCAINE [Concomitant]
     Active Substance: LIDOCAINE
     Indication: Spinal myelogram
     Dosage: 1 APPLICATION, ONE TIME
     Route: 061
     Dates: start: 20200305, end: 20200305
  84. ICOSAPENT ETHYL [Concomitant]
     Active Substance: ICOSAPENT ETHYL
     Indication: Hyperlipidaemia
     Dosage: 4 G, QD
     Route: 048
     Dates: start: 20160125, end: 20180812
  85. LEVALBUTEROL                       /01419301/ [Concomitant]
     Indication: Asthma
     Dosage: (45 MCG/PUFF) 2 PUFF, PRN
     Route: 055
     Dates: start: 20161115
  86. LEVALBUTEROL                       /01419301/ [Concomitant]
     Dosage: 1.25 MG, TID
     Route: 055
     Dates: start: 20161115
  87. ROSUVASTATIN [Concomitant]
     Active Substance: ROSUVASTATIN
     Indication: Type IIa hyperlipidaemia
     Dosage: 5 MG, QD
     Route: 048
     Dates: start: 20110622, end: 20180812
  88. LEVOTHYROXINE [Concomitant]
     Active Substance: LEVOTHYROXINE
     Indication: Hypothyroidism
     Dosage: 88 UG, QD
     Route: 048
     Dates: start: 20160421, end: 20180426
  89. LEVOTHYROXINE [Concomitant]
     Active Substance: LEVOTHYROXINE
     Dosage: 125 UG, QD
     Route: 048
     Dates: start: 20210601
  90. METRONIDAZOLE [Concomitant]
     Active Substance: METRONIDAZOLE
     Indication: Diverticulitis
     Dosage: 500 MG, TID
     Route: 048
     Dates: start: 20200430, end: 20200513
  91. CIPROFLOXACIN [Concomitant]
     Active Substance: CIPROFLOXACIN
     Indication: Diverticulitis
     Dosage: 500 MG, BID
     Route: 048
     Dates: start: 20200430, end: 20200513
  92. AMLODIPINE [Concomitant]
     Active Substance: AMLODIPINE BESYLATE
     Indication: Hypertension
     Dosage: 5 MILLIGRAM, QD
     Route: 048
     Dates: start: 20190624, end: 20190804
  93. AMLODIPINE [Concomitant]
     Active Substance: AMLODIPINE BESYLATE
     Dosage: 7.5 MILLIGRAM, QD
     Route: 048
     Dates: start: 20190805, end: 20210706
  94. AMLODIPINE [Concomitant]
     Active Substance: AMLODIPINE BESYLATE
     Dosage: 10 MILLIGRAM, QD
     Route: 048
     Dates: start: 20210707, end: 20230329
  95. CALCIUM [Concomitant]
     Active Substance: CALCIUM
     Indication: Supplementation therapy
     Dosage: 600 MILLIGRAM, BID
     Route: 048
     Dates: start: 20190624
  96. TORADOL [Concomitant]
     Active Substance: KETOROLAC TROMETHAMINE
     Indication: Flank pain
     Dosage: 15 MILLIGRAM, SINGLE
     Dates: start: 20200620, end: 20200620
  97. PROCHLORPERAZINE EDISYLATE [Concomitant]
     Active Substance: PROCHLORPERAZINE EDISYLATE
     Indication: Flank pain
     Dosage: 12.5 MILLIGRAM, PRN
     Route: 042
     Dates: start: 20200620, end: 20200621
  98. ANTACID [ALUMINIUM HYDROXIDE;DIMETICONE;MAGNESIUM HYDROXIDE] [Concomitant]
     Indication: Chronic gastritis
     Dosage: 1 DOSAGE FORM, PRN
     Route: 048
     Dates: start: 20200624, end: 20200907
  99. TYLENOL [Concomitant]
     Active Substance: ACETAMINOPHEN
     Indication: Appendicitis
     Dosage: 500 MILLIGRAM, PRN
     Route: 042
     Dates: start: 20200905, end: 20200906
  100. ZOSYN [Concomitant]
     Active Substance: PIPERACILLIN SODIUM\TAZOBACTAM SODIUM
     Indication: Appendicitis
     Dosage: 4.5 MILLIGRAM, SINGLE
     Route: 042
     Dates: start: 20200905, end: 20200905
  101. ROCURONIUM [Concomitant]
     Active Substance: ROCURONIUM BROMIDE
     Indication: Appendicitis
     Dosage: 20 MILLIGRAM, SINGLE
     Route: 042
     Dates: start: 20200905, end: 20200905
  102. PROPOFOL [Concomitant]
     Active Substance: PROPOFOL
     Indication: Appendicitis
     Dosage: 30 MILLIGRAM, PRN
     Route: 042
     Dates: start: 20200905, end: 20200905
  103. SODIUM CHLORIDE [Concomitant]
     Active Substance: SODIUM CHLORIDE
     Indication: Appendicitis
     Dosage: 500 MILLILITER, PRN
     Route: 042
     Dates: start: 20200906, end: 20200906
  104. SODIUM CHLORIDE [Concomitant]
     Active Substance: SODIUM CHLORIDE
     Indication: Orthostatic hypotension
  105. TIZANIDINE [Concomitant]
     Active Substance: TIZANIDINE
     Indication: Pain in extremity
     Dosage: 2 MILLIGRAM, TID
     Route: 048
     Dates: start: 20200928, end: 20201031
  106. TIZANIDINE [Concomitant]
     Active Substance: TIZANIDINE
     Dosage: 2 MILLIGRAM, QD
     Route: 048
     Dates: start: 20210611, end: 20220224
  107. FERROUS SULFATE [Concomitant]
     Active Substance: FERROUS SULFATE
     Indication: Iron deficiency anaemia
     Dosage: 325 MILLIGRAM, QOD
     Route: 048
     Dates: start: 20200928
  108. RINGERS SOLUTION [Concomitant]
     Active Substance: CALCIUM CHLORIDE\POTASSIUM CHLORIDE\SODIUM CHLORIDE
     Indication: Orthostatic hypotension
     Dosage: 125 ML/HR PRN
     Route: 042
     Dates: start: 20200626, end: 20200627
  109. ZOFRAN ODT [Concomitant]
     Active Substance: ONDANSETRON HYDROCHLORIDE
     Indication: Flank pain
     Dosage: 4 MILLIGRAM
     Route: 042
     Dates: start: 20200620, end: 20200621
  110. ZOFRAN ODT [Concomitant]
     Active Substance: ONDANSETRON HYDROCHLORIDE
     Indication: Appendicitis
     Dosage: 4 MILLIGRAM, PRN
     Dates: start: 20200905, end: 20200906
  111. DILAUDID [Concomitant]
     Active Substance: HYDROMORPHONE HYDROCHLORIDE
     Indication: Flank pain
     Dosage: 0.5 MILLIGRAM, SINGLE
     Route: 042
     Dates: start: 20200620, end: 20200620
  112. DILAUDID [Concomitant]
     Active Substance: HYDROMORPHONE HYDROCHLORIDE
     Indication: Appendicitis
     Dosage: 1 UNK
     Route: 042
     Dates: start: 20200621, end: 20200621
  113. DILAUDID [Concomitant]
     Active Substance: HYDROMORPHONE HYDROCHLORIDE
     Dosage: 0.5 MILLIGRAM, PRN
     Route: 042
     Dates: start: 20200905, end: 20200906
  114. ONDANSETRON [Concomitant]
     Active Substance: ONDANSETRON
     Indication: Gastroenteritis
     Dosage: 4 MILLIGRAM, PRN
     Route: 048
     Dates: start: 20191229, end: 20191230
  115. MIRALAX [Concomitant]
     Active Substance: POLYETHYLENE GLYCOL 3350
     Indication: Constipation
     Dosage: 17 GRAM, QD
     Route: 048
     Dates: start: 20210219, end: 20210305
  116. FLONASE [Concomitant]
     Active Substance: FLUTICASONE PROPIONATE
     Indication: Sinusitis
     Dosage: 2 DOSAGE FORM, QD
     Dates: start: 20210202, end: 20210207
  117. AUGMENTIN [Concomitant]
     Active Substance: AMOXICILLIN\CLAVULANATE POTASSIUM
     Indication: Sinusitis
     Dosage: 1 TABLET, BID
     Route: 048
     Dates: start: 20210202, end: 20210207
  118. FERROUS SULFATE [Concomitant]
     Active Substance: FERROUS SULFATE
     Indication: Iron deficiency anaemia
     Dosage: 325 MILLIGRAM, QOD
     Dates: start: 20200928, end: 20210315
  119. OZEMPIC [Concomitant]
     Active Substance: SEMAGLUTIDE
     Indication: Type 2 diabetes mellitus
     Dosage: 0.5 MILLIGRAM, WEEKLY
     Route: 058
     Dates: start: 20210601, end: 20210804
  120. OZEMPIC [Concomitant]
     Active Substance: SEMAGLUTIDE
     Dosage: 1 MILLIGRAM, WEEKLY
     Route: 058
     Dates: start: 20210805
  121. INSULIN DEGLUDEC [Concomitant]
     Active Substance: INSULIN DEGLUDEC
     Indication: Type 2 diabetes mellitus
     Dosage: 50 UNITS, QD
     Route: 058
     Dates: start: 20190815, end: 20230329
  122. JARDIANCE [Concomitant]
     Active Substance: EMPAGLIFLOZIN
     Indication: Type 2 diabetes mellitus
     Dosage: 25 MILLIGRAM, QD
     Route: 048
     Dates: start: 20210805, end: 20210808
  123. FARXIGA [Concomitant]
     Active Substance: DAPAGLIFLOZIN PROPANEDIOL
     Indication: Type 2 diabetes mellitus
     Dosage: 10 MILLIGRAM, QD
     Route: 048
     Dates: start: 20210820
  124. FLUZONE [Concomitant]
     Active Substance: INFLUENZA A VIRUS A/CALIFORNIA/7/2009 X-179A (H1N1) ANTIGEN (FORMALDEHYDE INACTIVATED)\INFLUENZA A V
     Indication: Prophylaxis
     Dosage: 0.7 MILLILITER
     Route: 030
     Dates: start: 20211015, end: 20211015
  125. VOLTAREN [Concomitant]
     Active Substance: DICLOFENAC SODIUM
     Indication: Arthralgia
     Dosage: 1 APPLICATION, QID
     Route: 061
     Dates: start: 20220227
  126. LIDOCAINE HYDROCHLORIDE [Concomitant]
     Active Substance: LIDOCAINE HYDROCHLORIDE
     Indication: Arthralgia
     Dosage: 1 APPLICATION, OD
     Route: 061
     Dates: start: 20220227
  127. ESCITALOPRAM OXALATE [Concomitant]
     Active Substance: ESCITALOPRAM OXALATE
     Indication: Anxiety
     Dosage: 10 MILLIGRAM, OD
     Dates: start: 20220325, end: 20220408
  128. VITAMIN D3 [Concomitant]
     Active Substance: CHOLECALCIFEROL
     Indication: Supplementation therapy
     Dosage: 1000 INTERNATIONAL UNIT, QD
     Route: 048
     Dates: start: 20220227

REACTIONS (30)
  - Therapy cessation [Unknown]
  - Appendicitis [Recovered/Resolved]
  - Intra-abdominal haemorrhage [Recovered/Resolved]
  - Orthostatic hypotension [Recovered/Resolved]
  - Gastroenteritis [Recovered/Resolved]
  - Gallbladder enlargement [Recovered/Resolved]
  - Dizziness postural [Recovered/Resolved]
  - Presyncope [Recovered/Resolved]
  - Colitis [Recovered/Resolved]
  - Haematochezia [Recovered/Resolved]
  - Hepatic cirrhosis [Not Recovered/Not Resolved]
  - Iron deficiency anaemia [Recovered/Resolved]
  - Flank pain [Recovered/Resolved]
  - Torticollis [Not Recovered/Not Resolved]
  - Acute sinusitis [Recovered/Resolved]
  - Pain in extremity [Recovered/Resolved]
  - Diverticulitis [Recovered/Resolved]
  - Injection site pain [Recovered/Resolved]
  - Dermal cyst [Recovered/Resolved]
  - Sinusitis [Recovered/Resolved]
  - Vertigo [Recovered/Resolved]
  - Mucosal prolapse syndrome [Not Recovered/Not Resolved]
  - Helicobacter gastritis [Recovered/Resolved]
  - Acute sinusitis [Recovered/Resolved]
  - Chronic gastritis [Recovered/Resolved]
  - Leukocytosis [Not Recovered/Not Resolved]
  - Vulvovaginal dryness [Not Recovered/Not Resolved]
  - Fall [Recovered/Resolved with Sequelae]
  - Arthralgia [Recovered/Resolved]
  - Urticaria [Recovered/Resolved]

NARRATIVE: CASE EVENT DATE: 20191226
